FAERS Safety Report 6588923-9 (Version None)
Quarter: 2010Q1

REPORT INFORMATION
  Report Type: 
  Country: None (occurrence: None)
  Receive Date: 20100212
  Receipt Date: 20100125
  Transmission Date: 20100710
  Serious: Yes (Other)
  Sender: FDA-Public Use
  Company Number: 1000006511

PATIENT
  Age: 76 Year
  Sex: Male
  Weight: 78 kg

DRUGS (3)
  1. NEBIVOLOL HCL [Suspect]
     Indication: ATRIAL FIBRILLATION
     Dosage: 5 MG (5 MG, 1 IN 1 D), ORAL
     Route: 048
     Dates: start: 20080609, end: 20081029
  2. SINTROM [Concomitant]
  3. DIAMICRON [Concomitant]

REACTIONS (3)
  - ALANINE AMINOTRANSFERASE INCREASED [None]
  - ASPARTATE AMINOTRANSFERASE INCREASED [None]
  - GAMMA-GLUTAMYLTRANSFERASE INCREASED [None]
